FAERS Safety Report 11837245 (Version 1)
Quarter: 2015Q4

REPORT INFORMATION
  Report Type: Spontaneous
  Country: US (occurrence: US)
  Receive Date: 20151215
  Receipt Date: 20151215
  Transmission Date: 20160305
  Serious: No
  Sender: FDA-Public Use
  Company Number: US-PFIZER INC-2015419710

PATIENT
  Sex: Female

DRUGS (1)
  1. SUTENT [Suspect]
     Active Substance: SUNITINIB MALATE
     Dosage: UNK, CYCLIC (TWO WEEKS ON AND ONE WEEK OFF)

REACTIONS (3)
  - Influenza like illness [Unknown]
  - Vomiting [Unknown]
  - Malaise [Unknown]
